FAERS Safety Report 10423389 (Version 2)
Quarter: 2014Q3

REPORT INFORMATION
  Report Type: Report from Study
  Country: JP (occurrence: JP)
  Receive Date: 20140902
  Receipt Date: 20140908
  Transmission Date: 20150326
  Serious: Yes (Death, Hospitalization, Other)
  Sender: FDA-Public Use
  Company Number: JP-PFIZER INC-2014242139

PATIENT
  Age: 77 Year
  Sex: Male

DRUGS (2)
  1. ASPIRIN. [Suspect]
     Active Substance: ASPIRIN
     Indication: ISCHAEMIC STROKE
     Dosage: UNK
  2. SLONNON [Suspect]
     Active Substance: ARGATROBAN
     Indication: ISCHAEMIC STROKE
     Dosage: UNK

REACTIONS (2)
  - Pulmonary haemorrhage [Fatal]
  - Subarachnoid haemorrhage [Unknown]
